FAERS Safety Report 11658872 (Version 3)
Quarter: 2015Q4

REPORT INFORMATION
  Report Type: Spontaneous
  Country: FR (occurrence: FR)
  Receive Date: 20151026
  Receipt Date: 20151129
  Transmission Date: 20160304
  Serious: Yes (Other)
  Sender: FDA-Public Use
  Company Number: PHHY2015FR134409

PATIENT
  Age: 58 Year
  Sex: Male

DRUGS (9)
  1. PIPERACILIN/TAZOBAKTAM MYLAN 4G/500 MG [Suspect]
     Active Substance: PIPERACILLIN SODIUM\TAZOBACTAM SODIUM
     Indication: INFECTION
     Dosage: 4 G, TID
     Route: 042
     Dates: start: 20150819, end: 20150830
  2. ATORVASTATINE PFIZER [Concomitant]
     Active Substance: ATORVASTATIN
     Indication: PRODUCT USED FOR UNKNOWN INDICATION
     Dosage: 20 MG, QD
     Route: 065
  3. ZARZIO [Suspect]
     Active Substance: FILGRASTIM
     Indication: BONE MARROW FAILURE
     Dosage: 1 DF, QD
     Route: 042
     Dates: start: 20150828, end: 20150901
  4. VANCOMYCIN SANDOZ [Suspect]
     Active Substance: VANCOMYCIN
     Indication: INFECTION
     Dosage: 1 G, TID
     Route: 042
     Dates: start: 20150821, end: 20150831
  5. FLUCONAZOLE ARROW GELULE [Suspect]
     Active Substance: FLUCONAZOLE
     Indication: INFECTION
     Dosage: 200 MG, BID
     Route: 048
     Dates: start: 20150813, end: 20150830
  6. VERAPAMIL MERCK [Concomitant]
     Indication: PRODUCT USED FOR UNKNOWN INDICATION
     Dosage: 1 DF, QD
     Route: 065
  7. AMBISOME [Suspect]
     Active Substance: AMPHOTERICIN B
     Indication: INFECTION
     Dosage: 300 MG, QD
     Route: 042
     Dates: start: 20150830, end: 20150831
  8. AMIKACIN  MYLAN [Suspect]
     Active Substance: AMIKACIN
     Indication: INFECTION
     Dosage: 2.5 G, QD
     Route: 042
     Dates: start: 20150830, end: 20150830
  9. CANDESARTAN TEVA [Concomitant]
     Indication: PRODUCT USED FOR UNKNOWN INDICATION
     Dosage: 1 G, QD
     Route: 065

REACTIONS (1)
  - Dermatitis exfoliative [Recovered/Resolved]

NARRATIVE: CASE EVENT DATE: 20150831
